FAERS Safety Report 4899234-1 (Version None)
Quarter: 2006Q1

REPORT INFORMATION
  Report Type: 
  Country: None (occurrence: None)
  Receive Date: 20060131
  Receipt Date: 20060118
  Transmission Date: 20060701
  Serious: Yes (Other)
  Sender: FDA-Public Use
  Company Number: HQWYE025815DEC05

PATIENT
  Age: 59 Year
  Sex: Male

DRUGS (4)
  1. MYLOTARG [Suspect]
     Indication: ACUTE MYELOID LEUKAEMIA
     Dosage: 16 MG (9 MG/M2/DAY), INTRAVENOUS DRIP
     Route: 041
     Dates: start: 20051130, end: 20051130
  2. MEROPEN (MEROPENEM) [Concomitant]
  3. AMIKACIN SULFATE [Concomitant]
  4. FUNGUARD (MICAFUNGIN SODIUM) [Concomitant]

REACTIONS (5)
  - DEHYDRATION [None]
  - HEPATITIS [None]
  - HICCUPS [None]
  - VENOOCCLUSIVE LIVER DISEASE [None]
  - WEIGHT INCREASED [None]
